FAERS Safety Report 9101303 (Version 1)
Quarter: 2013Q1

REPORT INFORMATION
  Report Type: Spontaneous
  Country: IT (occurrence: IT)
  Receive Date: 20130215
  Receipt Date: 20130215
  Transmission Date: 20140127
  Serious: Yes (Hospitalization)
  Sender: FDA-Public Use
  Company Number: IT-SANOFI-AVENTIS-2013SA011518

PATIENT
  Age: 65 Year
  Sex: Female

DRUGS (4)
  1. TAXOTERE [Suspect]
     Indication: BREAST CANCER
     Route: 041
     Dates: start: 20121026, end: 20121026
  2. ZOFRAN [Concomitant]
     Indication: PROPHYLAXIS OF NAUSEA AND VOMITING
     Route: 042
     Dates: start: 20121026, end: 20121026
  3. RANITIDINE [Concomitant]
     Indication: PREMEDICATION
     Route: 042
     Dates: start: 20121026, end: 20121026
  4. DEXAMETHASONE [Concomitant]
     Indication: PREMEDICATION
     Route: 042
     Dates: start: 20121026, end: 20121026

REACTIONS (5)
  - Hypersensitivity [Recovered/Resolved]
  - Rash [Recovered/Resolved]
  - Fibromyalgia [Recovered/Resolved]
  - Dyspnoea [Recovered/Resolved]
  - Airway peak pressure [Recovered/Resolved]
